FAERS Safety Report 19857607 (Version 1)
Quarter: 2021Q3

REPORT INFORMATION
  Report Type: Spontaneous
  Country: DE (occurrence: CN)
  Receive Date: 20210920
  Receipt Date: 20210920
  Transmission Date: 20211014
  Serious: Yes (Other)
  Sender: FDA-Public Use
  Company Number: CN-ELI_LILLY_AND_COMPANY-CN202109006903

PATIENT
  Age: 55 Year
  Sex: Male
  Weight: 60 kg

DRUGS (4)
  1. ERBITUX [Suspect]
     Active Substance: CETUXIMAB
     Indication: RECTAL CANCER
     Dosage: .8 G, UNK
     Route: 041
     Dates: start: 20210702, end: 20210702
  2. CALCIUM FOLINATE [Suspect]
     Active Substance: LEUCOVORIN CALCIUM
     Indication: RECTAL CANCER
     Dosage: .7 G, UNK
     Route: 041
     Dates: start: 20210702, end: 20210702
  3. FLUOROURACIL. [Suspect]
     Active Substance: FLUOROURACIL
     Indication: RECTAL CANCER
     Dosage: .7 G, UNK
     Route: 041
     Dates: start: 20210702, end: 20210702
  4. IRINOTECAN HYDROCHLORIDE. [Suspect]
     Active Substance: IRINOTECAN HYDROCHLORIDE
     Indication: RECTAL CANCER
     Dosage: 300 MG, UNK
     Route: 041
     Dates: start: 20210702, end: 20210702

REACTIONS (3)
  - White blood cell count decreased [Recovering/Resolving]
  - Lymphocyte count decreased [Recovering/Resolving]
  - Neutrophil count decreased [Recovering/Resolving]

NARRATIVE: CASE EVENT DATE: 20210719
